FAERS Safety Report 4563739-3 (Version None)
Quarter: 2005Q1

REPORT INFORMATION
  Report Type: 
  Country: None (occurrence: None)
  Receive Date: 20050121
  Receipt Date: 20050104
  Transmission Date: 20050727
  Serious: Yes (Hospitalization, Other)
  Sender: FDA-Public Use
  Company Number: US_0411108089

PATIENT
  Age: 83 Year
  Sex: Female

DRUGS (14)
  1. FORTEO [Suspect]
     Indication: OSTEOPOROSIS
     Dosage: 20 UG DAY
     Dates: start: 20040421
  2. INFLUENZA [Concomitant]
  3. ZOCOR (SIMVASTATIN RATIOPHARM) [Concomitant]
  4. ACCUPRIL [Concomitant]
  5. NORVASC [Concomitant]
  6. MOBIC [Concomitant]
  7. VICODIN [Concomitant]
  8. METOPROLOL [Concomitant]
  9. TERAZONSIN [Concomitant]
  10. PROTONIX [Concomitant]
  11. PEPCID 9FAMOTIDINE) [Concomitant]
  12. CALCIUM GLUCONATE [Concomitant]
  13. PRAVACHOL [Concomitant]
  14. GLYBURIDE [Concomitant]

REACTIONS (6)
  - HYPOGLYCAEMIA [None]
  - LOSS OF CONSCIOUSNESS [None]
  - ORAL INTAKE REDUCED [None]
  - PHARMACEUTICAL PRODUCT COMPLAINT [None]
  - PO2 DECREASED [None]
  - SOMNOLENCE [None]
